FAERS Safety Report 21176809 (Version 1)
Quarter: 2022Q3

REPORT INFORMATION
  Report Type: Report from Study
  Country: GB (occurrence: GB)
  Receive Date: 20220805
  Receipt Date: 20220805
  Transmission Date: 20221027
  Serious: Yes (Other)
  Sender: FDA-Public Use
  Company Number: GB-GSK-GB2022EME114510

PATIENT

DRUGS (1)
  1. BELANTAMAB MAFODOTIN [Suspect]
     Active Substance: BELANTAMAB MAFODOTIN
     Indication: Product used for unknown indication
     Dosage: UNK

REACTIONS (5)
  - Ulcerative keratitis [Unknown]
  - Keratopathy [Unknown]
  - Visual acuity tests abnormal [Unknown]
  - Vision blurred [Unknown]
  - Dry eye [Unknown]
